FAERS Safety Report 10501119 (Version 1)
Quarter: 2014Q4

REPORT INFORMATION
  Report Type: Spontaneous
  Country: US (occurrence: None)
  Receive Date: 20141003
  Receipt Date: 20141003
  Transmission Date: 20150528
  Serious: Yes (Other)
  Sender: FDA-Public Use
  Company Number: None

PATIENT
  Age: 74 Year
  Sex: Male
  Weight: 66.23 kg

DRUGS (1)
  1. BONIVA [Suspect]
     Active Substance: IBANDRONATE SODIUM
     Indication: OSTEOPOROSIS
     Dosage: INFUSION?QUARTERLY?INTO A VEIN
     Dates: start: 20131002, end: 20140714

REACTIONS (8)
  - Pain [None]
  - Ventricular extrasystoles [None]
  - Muscle strain [None]
  - Musculoskeletal pain [None]
  - Neck pain [None]
  - Inflammation [None]
  - Activities of daily living impaired [None]
  - Extrasystoles [None]

NARRATIVE: CASE EVENT DATE: 20131002
